FAERS Safety Report 8052043-7 (Version None)
Quarter: 2012Q1

REPORT INFORMATION
  Report Type: 
  Country: None (occurrence: None)
  Receive Date: 20120111
  Receipt Date: 20111229
  Transmission Date: 20120608
  Serious: Yes (Life-Threatening, Hospitalization, Other)
  Sender: FDA-Public Use
  Company Number: 2011AP003167

PATIENT
  Age: 54 Year
  Sex: Male

DRUGS (8)
  1. ALL OTHER THERAPEUTIC PRODUCTS (ALL OTHER THERAPEUTIC PRODUCTS) [Concomitant]
  2. GTN (GLYCERYL TRINITRATE) [Concomitant]
  3. ASPIRIN [Concomitant]
  4. FUROSEMIDE [Concomitant]
  5. BISOPROLOL FUMARATE [Concomitant]
  6. RAMIPRIL [Suspect]
     Indication: HYPERTENSION
     Dosage: UNKNOWN;PO;UNKNOWN
     Route: 048
  7. METFORMIN HCL [Suspect]
     Indication: DIABETES MELLITUS MANAGEMENT
     Dosage: UNKNOWN;PO;UNKNOWN
     Route: 048
  8. ATORVASTATIN [Concomitant]

REACTIONS (14)
  - RHABDOMYOLYSIS [None]
  - FALL [None]
  - HYPOGLYCAEMIA [None]
  - RENAL FAILURE ACUTE [None]
  - LACTIC ACIDOSIS [None]
  - HYPOTHERMIA [None]
  - ACTIVATED PARTIAL THROMBOPLASTIN TIME PROLONGED [None]
  - AMYLASE INCREASED [None]
  - SEPSIS [None]
  - BLOOD BILIRUBIN INCREASED [None]
  - TOXICITY TO VARIOUS AGENTS [None]
  - HYPOTENSION [None]
  - RESPIRATORY FAILURE [None]
  - PLATELET COUNT INCREASED [None]
